FAERS Safety Report 8059187-4 (Version None)
Quarter: 2012Q1

REPORT INFORMATION
  Report Type: 
  Country: None (occurrence: None)
  Receive Date: 20120119
  Receipt Date: 20120119
  Transmission Date: 20120608
  Serious: Yes (Life-Threatening, Hospitalization, Disabling)
  Sender: FDA-Public Use
  Company Number: None

PATIENT
  Sex: Female
  Weight: 58.9676 kg

DRUGS (1)
  1. RECLAST [Suspect]
     Indication: OSTEOPOROSIS
     Dates: start: 20110719

REACTIONS (10)
  - DISORIENTATION [None]
  - DYSPNOEA [None]
  - PAIN IN JAW [None]
  - HYPOTENSION [None]
  - ARTHRALGIA [None]
  - JOINT CREPITATION [None]
  - CONFUSIONAL STATE [None]
  - PALLOR [None]
  - EUPHORIC MOOD [None]
  - BODY TEMPERATURE INCREASED [None]
